FAERS Safety Report 8185266-7 (Version None)
Quarter: 2012Q1

REPORT INFORMATION
  Report Type: 
  Country: None (occurrence: None)
  Receive Date: 20120305
  Receipt Date: 20120227
  Transmission Date: 20120608
  Serious: Yes (Other)
  Sender: FDA-Public Use
  Company Number: PHEH2012US004031

PATIENT
  Sex: Female
  Weight: 67.574 kg

DRUGS (7)
  1. AFINITOR [Suspect]
     Indication: RENAL CANCER METASTATIC
     Dosage: 10 MG DAILY
     Route: 048
     Dates: start: 20120126
  2. TRAMADOL HCL [Concomitant]
     Dosage: 50 MG, UNK
  3. LORTAB [Concomitant]
  4. BIOPLEX MOUTHWASH [Concomitant]
  5. ATIVAN [Concomitant]
     Dosage: 0.5 MG, UNK
  6. BIOPLEX MOUTHWASH [Concomitant]
  7. AMBIEN CR [Concomitant]
     Dosage: 6.25 MG, UNK

REACTIONS (15)
  - ASPARTATE AMINOTRANSFERASE INCREASED [None]
  - RED BLOOD CELL COUNT DECREASED [None]
  - BLOOD ALKALINE PHOSPHATASE DECREASED [None]
  - NEUTROPENIA [None]
  - WHITE BLOOD CELL COUNT DECREASED [None]
  - FATIGUE [None]
  - NEOPLASM PROGRESSION [None]
  - NEOPLASM MALIGNANT [None]
  - GLOMERULAR FILTRATION RATE DECREASED [None]
  - DRUG INEFFECTIVE [None]
  - PAIN [None]
  - ALANINE AMINOTRANSFERASE INCREASED [None]
  - MOUTH ULCERATION [None]
  - PROTEIN TOTAL INCREASED [None]
  - GLOBULINS INCREASED [None]
